FAERS Safety Report 4269683-3 (Version None)
Quarter: 2004Q1

REPORT INFORMATION
  Report Type: 
  Country: None (occurrence: None)
  Receive Date: 20040112
  Receipt Date: 20040106
  Transmission Date: 20041129
  Serious: Yes (Death)
  Sender: FDA-Public Use
  Company Number: US-JNJFOC-20040100703

PATIENT
  Age: 62 Year
  Sex: Female
  Weight: 84.9 kg

DRUGS (1)
  1. CISAPRIDE (CISAPRIDE) UNSPECIFIED [Suspect]
     Indication: GASTROOESOPHAGEAL REFLUX DISEASE
     Dosage: 20 MG, 4 IN 1 DAY, ORAL
     Route: 048
     Dates: start: 20010730, end: 20031216

REACTIONS (1)
  - ROAD TRAFFIC ACCIDENT [None]
